FAERS Safety Report 25683983 (Version 1)
Quarter: 2025Q3

REPORT INFORMATION
  Report Type: Spontaneous
  Country: GB (occurrence: GB)
  Receive Date: 20250815
  Receipt Date: 20250815
  Transmission Date: 20251020
  Serious: Yes (Other)
  Sender: ACCORD
  Company Number: None

PATIENT
  Age: 40 Year
  Sex: Male
  Weight: 125 kg

DRUGS (7)
  1. LEVETIRACETAM [Suspect]
     Active Substance: LEVETIRACETAM
     Indication: Product used for unknown indication
  2. MIRTAZAPINE [Concomitant]
     Active Substance: MIRTAZAPINE
     Indication: Depression
  3. TRAMADOL [Concomitant]
     Active Substance: TRAMADOL
     Indication: Pain
  4. SERETIDE [Concomitant]
     Active Substance: FLUTICASONE PROPIONATE\SALMETEROL XINAFOATE
     Indication: Asthma
  5. ALBUTEROL [Concomitant]
     Active Substance: ALBUTEROL
  6. CANDESARTAN [Concomitant]
     Active Substance: CANDESARTAN
  7. NAPROXEN [Concomitant]
     Active Substance: NAPROXEN

REACTIONS (3)
  - Self-injurious ideation [Not Recovered/Not Resolved]
  - Anger [Not Recovered/Not Resolved]
  - Agitated depression [Not Recovered/Not Resolved]

NARRATIVE: CASE EVENT DATE: 20250710
